FAERS Safety Report 13889741 (Version 1)
Quarter: 2017Q3

REPORT INFORMATION
  Report Type: Spontaneous
  Country: GB (occurrence: GB)
  Receive Date: 20170822
  Receipt Date: 20170822
  Transmission Date: 20171127
  Serious: Yes (Other)
  Sender: FDA-Public Use
  Company Number: GB-MYLANLABS-2017M1052419

PATIENT

DRUGS (3)
  1. AMLODIPINE [Suspect]
     Active Substance: AMLODIPINE BESYLATE
     Indication: HYPERTENSION
     Dosage: 5 MG, UNK
     Route: 048
     Dates: start: 20170523, end: 20170713
  2. LANSOPRAZOLE TEVA [Concomitant]
     Active Substance: LANSOPRAZOLE
     Dosage: UNK
  3. TEVA CLOPIDOGREL [Concomitant]
     Active Substance: CLOPIDOGREL BISULFATE
     Dosage: UNK

REACTIONS (4)
  - Dyspnoea [Recovering/Resolving]
  - Chest pain [Recovering/Resolving]
  - Abdominal pain [Recovering/Resolving]
  - Wheezing [Recovering/Resolving]
